FAERS Safety Report 13866302 (Version 1)
Quarter: 2017Q3

REPORT INFORMATION
  Report Type: Spontaneous
  Country: US (occurrence: US)
  Receive Date: 20170814
  Receipt Date: 20170814
  Transmission Date: 20171127
  Serious: No
  Sender: FDA-Public Use
  Company Number: US-ROCHE-1891979

PATIENT
  Sex: Male

DRUGS (1)
  1. ACTEMRA [Suspect]
     Active Substance: TOCILIZUMAB
     Indication: ANKYLOSING SPONDYLITIS
     Dosage: 162 MG/0.9 ML USE AS DIRECTED BY PHYSICIAN
     Route: 058
     Dates: start: 20150202

REACTIONS (1)
  - Cellulitis [Not Recovered/Not Resolved]
